FAERS Safety Report 4381725-3 (Version None)
Quarter: 2004Q2

REPORT INFORMATION
  Report Type: 
  Country: None (occurrence: None)
  Receive Date: 20040603
  Receipt Date: 20030903
  Transmission Date: 20050107
  Serious: Yes (Death, Hospitalization)
  Sender: FDA-Public Use
  Company Number: 200316753US

PATIENT
  Age: 86 Year
  Sex: Female
  Weight: 66 kg

DRUGS (10)
  1. LOVENOX [Suspect]
     Indication: CORONARY ANGIOPLASTY
     Dosage: 1 MG/KG Q12H, SC
     Route: 058
     Dates: start: 20030708, end: 20030717
  2. LOVENOX [Suspect]
     Indication: CORONARY ANGIOPLASTY
     Dosage: 1 MG/KG ONCE SC
     Route: 058
     Dates: start: 20030718, end: 20030718
  3. LEVOTHYROXINE SODIUM [Concomitant]
  4. SIMVASTATIN [Concomitant]
  5. ASPIRIN [Concomitant]
  6. NORVASC [Concomitant]
  7. AMBIEN [Concomitant]
  8. PARACETAMOL, DEXTROPROPOXYPHENE (DARVOCET-N 100) [Concomitant]
  9. .. [Concomitant]
  10. ,, [Concomitant]

REACTIONS (3)
  - HAEMORRHAGE INTRACRANIAL [None]
  - SUBDURAL HAEMATOMA [None]
  - VASCULAR PSEUDOANEURYSM [None]
